FAERS Safety Report 4600905-2 (Version None)
Quarter: 2005Q1

REPORT INFORMATION
  Report Type: 
  Country: None (occurrence: None)
  Receive Date: 20050127
  Receipt Date: 20041102
  Transmission Date: 20050727
  Serious: No
  Sender: FDA-Public Use
  Company Number: USA041182915

PATIENT
  Age: 38 Year
  Sex: Male

DRUGS (2)
  1. STRATTERA [Suspect]
     Dosage: 80 MG DAY
     Dates: start: 20041001
  2. DOXEPIN HCL [Concomitant]

REACTIONS (2)
  - DIZZINESS [None]
  - TREMOR [None]
